FAERS Safety Report 8773921 (Version 1)
Quarter: 2012Q4

REPORT INFORMATION
  Report Type: 
  Country: US (occurrence: US)
  Receive Date: 20120907
  Receipt Date: 20120907
  Transmission Date: 20130627
  Serious: No
  Sender: FDA-Public Use
  Company Number: US-PFIZER INC-2012219341

PATIENT
  Sex: Female

DRUGS (4)
  1. ADVIL [Suspect]
     Indication: BACK PAIN
     Dosage: UNK
  2. ADVIL [Suspect]
     Indication: INJURY
  3. ADVIL [Suspect]
     Indication: ARTHRALGIA
  4. ASPIRIN [Concomitant]
     Indication: CARDIAC DISORDER
     Dosage: 81 mg, daily

REACTIONS (1)
  - Feeling abnormal [Unknown]
